FAERS Safety Report 10136883 (Version 1)
Quarter: 2014Q2

REPORT INFORMATION
  Report Type: Spontaneous
  Country: US (occurrence: US)
  Receive Date: 20140429
  Receipt Date: 20140429
  Transmission Date: 20141212
  Serious: No
  Sender: FDA-Public Use
  Company Number: US-ABBVIE-14P-163-1217393-00

PATIENT
  Sex: Male
  Weight: 88.53 kg

DRUGS (6)
  1. ANDROGEL [Suspect]
     Indication: BLOOD TESTOSTERONE DECREASED
     Dosage: 2 PUMPS
     Route: 061
     Dates: start: 201303, end: 201306
  2. ANDROGEL [Suspect]
     Dosage: 4 PUMPS
     Route: 061
     Dates: start: 201306, end: 201310
  3. LEVOTHYROXINE [Concomitant]
     Indication: HYPOTHYROIDISM
  4. AMLODIPINE [Concomitant]
     Indication: HYPERTENSION
  5. EPLERENONE [Concomitant]
     Indication: HYPERTENSION
  6. CHLORTHALIDONE [Concomitant]
     Indication: HYPERTENSION

REACTIONS (1)
  - Drug effect incomplete [Not Recovered/Not Resolved]
